FAERS Safety Report 8863631 (Version 1)
Quarter: 2012Q4

REPORT INFORMATION
  Report Type: 
  Country: US (occurrence: US)
  Receive Date: 20121024
  Receipt Date: 20121024
  Transmission Date: 20130627
  Serious: No
  Sender: FDA-Public Use
  Company Number: US-AMGEN-USASP2011063169

PATIENT
  Age: 60 Year
  Sex: Female

DRUGS (1)
  1. ENBREL [Suspect]
     Indication: PSORIASIS
     Dosage: 50 mg, 2 times/wk
     Dates: start: 20110919, end: 20111124

REACTIONS (7)
  - Productive cough [Recovered/Resolved]
  - Nasal congestion [Recovered/Resolved]
  - Epistaxis [Not Recovered/Not Resolved]
  - Dizziness [Not Recovered/Not Resolved]
  - Dyspnoea [Recovered/Resolved]
  - Bronchitis [Recovered/Resolved]
  - Psoriasis [Not Recovered/Not Resolved]
